FAERS Safety Report 10946798 (Version 3)
Quarter: 2015Q2

REPORT INFORMATION
  Report Type: Report from Study
  Country: US (occurrence: US)
  Receive Date: 20150323
  Receipt Date: 20150618
  Transmission Date: 20150821
  Serious: Yes (Hospitalization, Other)
  Sender: FDA-Public Use
  Company Number: US-ABBVIE-15K-163-1362554-00

PATIENT
  Age: 22 Year
  Sex: Female

DRUGS (1)
  1. HUMIRA [Suspect]
     Active Substance: ADALIMUMAB
     Indication: CROHN^S DISEASE
     Route: 065
     Dates: start: 20140422

REACTIONS (16)
  - Intestinal obstruction [Recovered/Resolved]
  - Crohn^s disease [Unknown]
  - Cardiac disorder [Not Recovered/Not Resolved]
  - Intestinal dilatation [Unknown]
  - Fistula [Unknown]
  - Nausea [Unknown]
  - Tachycardia [Unknown]
  - Treatment noncompliance [Not Recovered/Not Resolved]
  - Biliary colic [Unknown]
  - Crohn^s disease [Unknown]
  - Cardiomegaly [Unknown]
  - Hypotension [Unknown]
  - Abdominal pain [Unknown]
  - Inflammatory marker increased [Unknown]
  - Abscess [Unknown]
  - Abdominal pain [Unknown]

NARRATIVE: CASE EVENT DATE: 2014
